FAERS Safety Report 6970214-5 (Version None)
Quarter: 2010Q3

REPORT INFORMATION
  Report Type: 
  Country: None (occurrence: None)
  Receive Date: 20100823
  Receipt Date: 20100525
  Transmission Date: 20110219
  Serious: No
  Sender: FDA-Public Use
  Company Number: 012604

PATIENT
  Sex: Female
  Weight: 53 kg

DRUGS (14)
  1. CIMZIA [Suspect]
     Indication: CROHN'S DISEASE
     Dosage: SUBCUTANEOUS
     Route: 058
     Dates: start: 20090901
  2. PERCOCET [Concomitant]
     Dates: start: 20090101
  3. FENTANYL [Concomitant]
     Dates: start: 20100401
  4. LORAZEPAM [Concomitant]
     Dates: start: 20090101
  5. MIRAPEX [Concomitant]
     Dates: start: 20090101
  6. ZOLPIDEM [Concomitant]
     Dates: start: 20090101
  7. LIDODERM [Concomitant]
     Dates: start: 20090101
  8. CYMBALTA [Concomitant]
     Dates: start: 20100401
  9. VARENICLINE [Concomitant]
     Dates: start: 20100401
  10. PROVENTIL /00139501/ [Concomitant]
     Dates: start: 20100201
  11. FOLIC ACID [Concomitant]
     Dates: start: 20090101
  12. VITAMIN B12 NOS [Concomitant]
     Dates: start: 20090101
  13. VITAMIN D [Concomitant]
     Dates: start: 20090101
  14. UNKNOWN [Concomitant]
     Dates: start: 20100101

REACTIONS (1)
  - ABDOMINAL PAIN UPPER [None]
